FAERS Safety Report 11264731 (Version 1)
Quarter: 2015Q3

REPORT INFORMATION
  Report Type: Spontaneous
  Country: US (occurrence: US)
  Receive Date: 20150713
  Receipt Date: 20150713
  Transmission Date: 20151125
  Serious: Yes (Hospitalization)
  Sender: FDA-Public Use
  Company Number: US-AUROBINDO-AUR-APL-2015-05751

PATIENT

DRUGS (1)
  1. METOPROLOL 25MG [Suspect]
     Active Substance: METOPROLOL
     Indication: BLOOD PRESSURE MEASUREMENT
     Dosage: 25 MG, DAILY
     Route: 065
     Dates: start: 2010

REACTIONS (3)
  - Hypertension [Unknown]
  - Malaise [Unknown]
  - Drug ineffective [Unknown]
